FAERS Safety Report 6829508-6 (Version None)
Quarter: 2010Q3

REPORT INFORMATION
  Report Type: 
  Country: None (occurrence: None)
  Receive Date: 20100709
  Receipt Date: 20070320
  Transmission Date: 20110219
  Serious: No
  Sender: FDA-Public Use
  Company Number: US-PFIZER INC-2007006916

PATIENT
  Sex: Male
  Weight: 83.91 kg

DRUGS (4)
  1. CHANTIX [Suspect]
     Indication: SMOKING CESSATION THERAPY
     Dates: start: 20061205
  2. PERCOCET [Concomitant]
  3. IBUPROFEN [Concomitant]
  4. DURAGESIC-100 [Concomitant]
     Route: 062

REACTIONS (3)
  - ABDOMINAL DISCOMFORT [None]
  - CRYING [None]
  - FLATULENCE [None]
